FAERS Safety Report 23248696 (Version 2)
Quarter: 2023Q4

REPORT INFORMATION
  Report Type: Report from Study
  Country: US (occurrence: US)
  Receive Date: 20231201
  Receipt Date: 20231208
  Transmission Date: 20240109
  Serious: Yes (Hospitalization, Other)
  Sender: FDA-Public Use
  Company Number: US-ALXN-A202307569AA

PATIENT
  Sex: Male

DRUGS (3)
  1. ULTOMIRIS [Suspect]
     Active Substance: RAVULIZUMAB-CWVZ
     Indication: Myasthenia gravis
     Dosage: UNK
     Route: 041
     Dates: start: 20221109
  2. PREDNISONE [Suspect]
     Active Substance: PREDNISONE
     Indication: Product used for unknown indication
     Dosage: UNK
     Route: 065
  3. PREDNISONE [Suspect]
     Active Substance: PREDNISONE
     Dosage: 20 MILLIGRAM, UNK
     Route: 065

REACTIONS (14)
  - Atrial fibrillation [Unknown]
  - Glaucoma [Unknown]
  - Cataract [Unknown]
  - Pain [Recovering/Resolving]
  - Bone disorder [Unknown]
  - Compression fracture [Not Recovered/Not Resolved]
  - Kyphosis [Unknown]
  - White blood cell count decreased [Not Recovered/Not Resolved]
  - Lymphocyte count decreased [Unknown]
  - Drug ineffective [Unknown]
  - Nausea [Unknown]
  - Back pain [Unknown]
  - Headache [Unknown]
  - Bone pain [Unknown]

NARRATIVE: CASE EVENT DATE: 20230101
